FAERS Safety Report 23659165 (Version 1)
Quarter: 2024Q1

REPORT INFORMATION
  Report Type: Spontaneous
  Country: CA (occurrence: CA)
  Receive Date: 20240321
  Receipt Date: 20240321
  Transmission Date: 20240409
  Serious: Yes (Other)
  Sender: FDA-Public Use
  Company Number: CA-TEVA-VS-3171721

PATIENT
  Age: 53 Year
  Sex: Male

DRUGS (2)
  1. METHOTREXATE SODIUM [Suspect]
     Active Substance: METHOTREXATE SODIUM
     Indication: Crohn^s disease
     Route: 065
  2. MESALAMINE [Concomitant]
     Active Substance: MESALAMINE
     Dosage: DOSE FORM: TABLET (DELAYED AND EXTENDED RELEASE)
     Route: 065

REACTIONS (2)
  - Anal fistula [Unknown]
  - Condition aggravated [Unknown]
